FAERS Safety Report 4906460-1 (Version None)
Quarter: 2006Q1

REPORT INFORMATION
  Report Type: 
  Country: None (occurrence: None)
  Receive Date: 20060209
  Receipt Date: 20060202
  Transmission Date: 20060701
  Serious: Yes (Hospitalization)
  Sender: FDA-Public Use
  Company Number: 2006CG00240

PATIENT
  Age: 56 Year
  Sex: Female

DRUGS (16)
  1. MOPRAL [Suspect]
     Route: 048
  2. CRESTOR [Suspect]
     Route: 048
     Dates: end: 20060116
  3. ALDACTAZINE [Suspect]
     Route: 048
     Dates: end: 20060116
  4. TILCOTIL [Suspect]
     Route: 048
     Dates: end: 20060116
  5. APROVEL [Suspect]
     Route: 048
     Dates: end: 20060116
  6. AVLOCARDYL [Concomitant]
     Route: 048
  7. SEROPRAM [Concomitant]
  8. LEVOTHYROX [Concomitant]
     Dosage: 100 MICROGRAM ALTERNATING WITH 125 MICROGRAM QOD
     Dates: end: 20060101
  9. LEVOTHYROX [Concomitant]
     Dates: start: 20060101
  10. CLONAZEPAM [Concomitant]
  11. TOPALGIC [Concomitant]
  12. GLUCOPHAGE [Concomitant]
  13. MEDIATENSYL [Concomitant]
  14. DIAMICRON [Concomitant]
  15. MYOLASTAN [Concomitant]
  16. OESCLIM [Concomitant]
     Route: 062

REACTIONS (1)
  - RENAL FAILURE ACUTE [None]
